FAERS Safety Report 17764868 (Version 7)
Quarter: 2020Q3

REPORT INFORMATION
  Report Type: Spontaneous
  Country: SK (occurrence: SK)
  Receive Date: 20200511
  Receipt Date: 20200710
  Transmission Date: 20201102
  Serious: Yes (Other)
  Sender: FDA-Public Use
  Company Number: NVSC2020SK125724

PATIENT
  Age: 7 Decade
  Sex: Male

DRUGS (12)
  1. RITUXIMAB. [Suspect]
     Active Substance: RITUXIMAB
     Indication: B-CELL LYMPHOMA
  2. RITUXIMAB. [Suspect]
     Active Substance: RITUXIMAB
     Indication: B-CELL LYMPHOMA REFRACTORY
  3. GEMCITABINE KABI [Suspect]
     Active Substance: GEMCITABINE HYDROCHLORIDE
     Indication: B-CELL LYMPHOMA REFRACTORY
  4. GEMCITABINE KABI [Suspect]
     Active Substance: GEMCITABINE HYDROCHLORIDE
     Indication: B-CELL LYMPHOMA
  5. OXALIPLATIN MYLAN [Suspect]
     Active Substance: OXALIPLATIN
     Indication: B-CELL LYMPHOMA
  6. RITUXIMAB. [Suspect]
     Active Substance: RITUXIMAB
     Indication: NON-HODGKIN^S LYMPHOMA
     Dosage: UNK
     Route: 065
  7. OXALIPLATIN MYLAN [Suspect]
     Active Substance: OXALIPLATIN
     Indication: B-CELL LYMPHOMA REFRACTORY
  8. GEMCITABINE KABI [Suspect]
     Active Substance: GEMCITABINE HYDROCHLORIDE
     Indication: CHEMOTHERAPY
  9. OXALIPLATIN MYLAN [Suspect]
     Active Substance: OXALIPLATIN
     Indication: NON-HODGKIN^S LYMPHOMA
     Dosage: UNK
     Route: 065
  10. OXALIPLATIN MYLAN [Suspect]
     Active Substance: OXALIPLATIN
     Indication: CHEMOTHERAPY
  11. GEMCITABINE KABI [Suspect]
     Active Substance: GEMCITABINE HYDROCHLORIDE
     Indication: NON-HODGKIN^S LYMPHOMA
     Dosage: UNK
     Route: 065
  12. RITUXIMAB. [Suspect]
     Active Substance: RITUXIMAB
     Indication: CHEMOTHERAPY

REACTIONS (6)
  - Platelet count decreased [Unknown]
  - Thrombocytopenia [Recovered/Resolved]
  - Lymphadenopathy [Unknown]
  - Off label use [Unknown]
  - Condition aggravated [Recovering/Resolving]
  - Product use in unapproved indication [Unknown]
